FAERS Safety Report 8234820-2 (Version None)
Quarter: 2012Q1

REPORT INFORMATION
  Report Type: 
  Country: None (occurrence: None)
  Receive Date: 20120321
  Receipt Date: 20120305
  Transmission Date: 20120608
  Serious: Yes (Hospitalization)
  Sender: FDA-Public Use
  Company Number: ACO_29604_2012

PATIENT
  Age: 67 Year
  Sex: Female

DRUGS (6)
  1. CELEBREX [Concomitant]
  2. CHLORTHALIDONE [Concomitant]
  3. ATACAND [Concomitant]
  4. FAMPRIDINE-SR (FAMPRIDINE) TABLET [Suspect]
     Indication: MULTIPLE SCLEROSIS
     Dosage: 10 MG, BID, ORAL
     Route: 048
     Dates: start: 20070927
  5. THIAZIDE (HYDROCHLOROTHIAZIDE) [Concomitant]
  6. NAPROXEN [Concomitant]

REACTIONS (1)
  - ENDOMETRIAL CANCER [None]
